FAERS Safety Report 5426555-6 (Version None)
Quarter: 2007Q3

REPORT INFORMATION
  Report Type: 
  Country: None (occurrence: None)
  Receive Date: 20070731
  Receipt Date: 20070411
  Transmission Date: 20080115
  Serious: No
  Sender: FDA-Public Use
  Company Number: 2006PV019781

PATIENT
  Age: 64 Year
  Sex: Female
  Weight: 106.6 kg

DRUGS (8)
  1. EXENATIDE(EXENATIDE) PEN,DISPOSABLE [Suspect]
     Indication: TYPE 2 DIABETES MELLITUS
     Dosage: 10 UG, 2/D, SUBCUTANEOUS 10 UG, 2/D, SUBCUTANEOUS
     Route: 058
     Dates: start: 20060812
  2. EXENATIDE(EXENATIDE) PEN,DISPOSABLE [Suspect]
     Indication: TYPE 2 DIABETES MELLITUS
     Dosage: 10 UG, 2/D, SUBCUTANEOUS 10 UG, 2/D, SUBCUTANEOUS
     Route: 058
     Dates: start: 20061001
  3. EXENATIDE(EXENATIDE) PEN,DISPOSABLE [Suspect]
  4. GLUCOPHAGE [Concomitant]
  5. TRICOR [Concomitant]
  6. ACE INHIBITOR [Concomitant]
  7. VYTORIN [Concomitant]
  8. AVANDIA [Concomitant]

REACTIONS (4)
  - DIARRHOEA [None]
  - INJECTION SITE URTICARIA [None]
  - NAUSEA [None]
  - WEIGHT DECREASED [None]
